FAERS Safety Report 9835531 (Version 2)
Quarter: 2014Q1

REPORT INFORMATION
  Report Type: Spontaneous
  Country: US (occurrence: US)
  Receive Date: 20140122
  Receipt Date: 20140122
  Transmission Date: 20141002
  Serious: No
  Sender: FDA-Public Use
  Company Number: US-BRISTOL-MYERS SQUIBB COMPANY-19782770

PATIENT
  Age: 80 Year
  Sex: Male

DRUGS (5)
  1. ELIQUIS [Suspect]
     Indication: CEREBROVASCULAR ACCIDENT
  2. ELIQUIS [Suspect]
     Indication: ATRIAL FIBRILLATION
  3. LISINOPRIL [Concomitant]
  4. METOPROLOL [Concomitant]
  5. PLAVIX [Concomitant]

REACTIONS (3)
  - Medication error [Unknown]
  - Contusion [Recovered/Resolved]
  - Blood creatinine increased [Unknown]
